FAERS Safety Report 4456536-0 (Version None)
Quarter: 2004Q3

REPORT INFORMATION
  Report Type: 
  Country: None (occurrence: None)
  Receive Date: 20040921
  Receipt Date: 20040907
  Transmission Date: 20050211
  Serious: Yes (Hospitalization, Other)
  Sender: FDA-Public Use
  Company Number: JP-JNJFOC-20040706260

PATIENT
  Age: 29 Year
  Sex: Female

DRUGS (7)
  1. PEPCID AC [Suspect]
     Indication: NAUSEA
     Dosage: 10 MG, 1 IN 1 DAY, ORAL
     Route: 048
     Dates: start: 20040607
  2. LEVOFLOXACIN [Concomitant]
  3. MUCOSTA (REBAMIPIDE) [Concomitant]
  4. NAUZELIN (DOMEPERIDONE) [Concomitant]
  5. RIZE (CLOTIAZEPAM) [Concomitant]
  6. UNSPECIFIED MEDICATION (ALL OTHER THERAPEUTIC PRODUCTS) [Concomitant]
  7. ACETAMINOPHEN [Concomitant]

REACTIONS (3)
  - HEPATITIS ACUTE [None]
  - RED BLOOD CELL COUNT DECREASED [None]
  - WHITE BLOOD CELL COUNT DECREASED [None]
